FAERS Safety Report 11773755 (Version 1)
Quarter: 2015Q4

REPORT INFORMATION
  Report Type: Spontaneous
  Country: US (occurrence: US)
  Receive Date: 20151124
  Receipt Date: 20151124
  Transmission Date: 20160304
  Serious: No
  Sender: FDA-Public Use
  Company Number: US-BAYER-2015-474036

PATIENT
  Age: 60 Year
  Sex: Female
  Weight: 97.96 kg

DRUGS (1)
  1. ALEVE [Suspect]
     Active Substance: NAPROXEN SODIUM
     Indication: ARTHRALGIA
     Dosage: 2 DF, QD
     Route: 048
     Dates: start: 2014

REACTIONS (2)
  - Joint effusion [None]
  - Intentional product misuse [None]

NARRATIVE: CASE EVENT DATE: 20151119
